FAERS Safety Report 6478873-0 (Version None)
Quarter: 2009Q4

REPORT INFORMATION
  Report Type: 
  Country: None (occurrence: None)
  Receive Date: 20091207
  Receipt Date: 20091126
  Transmission Date: 20100525
  Serious: Yes (Other)
  Sender: FDA-Public Use
  Company Number: ES-B.I. PHARMACEUTICALS,INC./RIDGEFIELD-2009-ES-00207ES

PATIENT
  Age: 42 Year
  Sex: Male

DRUGS (4)
  1. VIRAMUNE [Suspect]
     Indication: HIV INFECTION
     Dosage: STRENGTH 50MG/5ML
     Route: 048
     Dates: start: 20090506, end: 20090530
  2. TRUVADA [Suspect]
     Indication: HIV INFECTION
     Dosage: STRENGHT 200MG EMTRICITABINE/ 245MG TENOFOVIR
     Route: 048
     Dates: start: 20090506, end: 20090530
  3. EBASTINE [Concomitant]
     Indication: HYPERSENSITIVITY
     Route: 048
  4. STILNOX [Concomitant]
     Indication: INSOMNIA
     Route: 048
     Dates: start: 20071101

REACTIONS (4)
  - DISCOMFORT [None]
  - HYPERTRANSAMINASAEMIA [None]
  - PYREXIA [None]
  - RASH GENERALISED [None]
